FAERS Safety Report 9638861 (Version 1)
Quarter: 2013Q4

REPORT INFORMATION
  Report Type: Spontaneous
  Country: US (occurrence: US)
  Receive Date: 20131022
  Receipt Date: 20131022
  Transmission Date: 20140711
  Serious: No
  Sender: FDA-Public Use
  Company Number: US-BRISTOL-MYERS SQUIBB COMPANY-19139682

PATIENT
  Age: 85 Year
  Sex: Female
  Weight: 70.29 kg

DRUGS (10)
  1. ELIQUIS [Suspect]
     Indication: ATRIAL FIBRILLATION
     Dates: start: 20130604, end: 20130718
  2. COUMADIN [Suspect]
  3. WARFARIN SODIUM [Suspect]
  4. PRADAXA [Suspect]
  5. SYNTHROID [Concomitant]
  6. FUROSEMIDE [Concomitant]
  7. POTASSIUM [Concomitant]
  8. ALBUTEROL INHALER [Concomitant]
  9. SPIRONOLACTONE [Concomitant]
  10. METOPROLOL [Concomitant]

REACTIONS (1)
  - Eczema [Unknown]
